FAERS Safety Report 7347922-X (Version None)
Quarter: 2011Q1

REPORT INFORMATION
  Report Type: 
  Country: None (occurrence: None)
  Receive Date: 20110311
  Receipt Date: 20110309
  Transmission Date: 20110831
  Serious: Yes (Other)
  Sender: FDA-Public Use
  Company Number: US-PFIZER INC-2010165158

PATIENT
  Sex: Female

DRUGS (3)
  1. PROZAC [Concomitant]
     Indication: HORMONE REPLACEMENT THERAPY
  2. PROZAC [Concomitant]
     Indication: DEPRESSION
     Dosage: UNK
     Dates: start: 20000101
  3. CHANTIX [Suspect]
     Indication: SMOKING CESSATION THERAPY
     Dosage: UNK
     Dates: start: 20071201, end: 20080101

REACTIONS (7)
  - LOSS OF CONSCIOUSNESS [None]
  - ABNORMAL DREAMS [None]
  - DEPRESSION [None]
  - SUICIDAL IDEATION [None]
  - ANXIETY [None]
  - AGGRESSION [None]
  - ANGER [None]
